FAERS Safety Report 6125263-6 (Version None)
Quarter: 2009Q1

REPORT INFORMATION
  Report Type: 
  Country: None (occurrence: None)
  Receive Date: 20090320
  Receipt Date: 20090315
  Transmission Date: 20090719
  Serious: Yes (Death, Hospitalization)
  Sender: FDA-Public Use
  Company Number: PHHY2009CN08037

PATIENT
  Age: 32 Year
  Sex: Male

DRUGS (11)
  1. SEBIVO [Suspect]
     Indication: HEPATITIS B
     Dosage: UNK
     Route: 048
     Dates: start: 20080101
  2. HEPSERA [Suspect]
     Dosage: UNK
  3. LAMIVUDINE [Suspect]
     Dosage: UNK
  4. TAZOCIN [Concomitant]
  5. PANTOPRAZOLE SODIUM [Concomitant]
  6. ESSENTIALE FORTE N [Concomitant]
  7. COMPOUND GLYCYRRHIZIN [Concomitant]
  8. ULINASTATIN [Concomitant]
  9. ALPROSTADIL [Concomitant]
  10. SODIUM BICARBONATE [Concomitant]
  11. METHYLTHIONINIUM CHLORIDE [Concomitant]

REACTIONS (33)
  - ABDOMINAL DISTENSION [None]
  - ANGIOPATHY [None]
  - ANOREXIA [None]
  - ARRHYTHMIA [None]
  - ARTERIAL CATHETERISATION [None]
  - ATRIAL HYPERTROPHY [None]
  - BLOOD CREATINE PHOSPHOKINASE INCREASED [None]
  - BLOOD CREATINE PHOSPHOKINASE MB INCREASED [None]
  - BLOOD PRESSURE DECREASED [None]
  - COAGULOPATHY [None]
  - COMA [None]
  - DISSEMINATED INTRAVASCULAR COAGULATION [None]
  - DYSPNOEA [None]
  - FATIGUE [None]
  - FOOD AVERSION [None]
  - GASTROINTESTINAL DISORDER [None]
  - HEPATITIS B [None]
  - LACTIC ACIDOSIS [None]
  - LIVER DISORDER [None]
  - MULTI-ORGAN FAILURE [None]
  - MUSCLE STRAIN [None]
  - MYALGIA [None]
  - MYOCARDITIS [None]
  - NAUSEA [None]
  - PALPITATIONS [None]
  - RENAL IMPAIRMENT [None]
  - RHABDOMYOLYSIS [None]
  - RIGHT VENTRICULAR FAILURE [None]
  - SHOCK [None]
  - SPLEEN DISORDER [None]
  - TACHYCARDIA [None]
  - VENTRICULAR HYPERTROPHY [None]
  - VOMITING [None]
